FAERS Safety Report 15938188 (Version 1)
Quarter: 2019Q1

REPORT INFORMATION
  Report Type: Spontaneous
  Country: US (occurrence: US)
  Receive Date: 20190208
  Receipt Date: 20190208
  Transmission Date: 20190417
  Serious: No
  Sender: FDA-Public Use
  Company Number: US-ROCHE-2186429

PATIENT
  Age: 42 Year
  Sex: Female

DRUGS (2)
  1. BENADRYL + DYCLONE MOUTHRINSE [Concomitant]
     Active Substance: DIPHENHYDRAMINE HYDROCHLORIDE\DYCLONINE HYDROCHLORIDE
     Indication: PREMEDICATION
  2. XOLAIR [Suspect]
     Active Substance: OMALIZUMAB
     Indication: ASTHMA
     Route: 065

REACTIONS (1)
  - Pruritus generalised [Unknown]
